FAERS Safety Report 5648522-X (Version None)
Quarter: 2008Q1

REPORT INFORMATION
  Report Type: 
  Country: None (occurrence: None)
  Receive Date: 20080229
  Receipt Date: 20080213
  Transmission Date: 20080703
  Serious: Yes (Hospitalization)
  Sender: FDA-Public Use
  Company Number: S08-FRA-00699-01

PATIENT
  Age: 60 Year
  Sex: Male

DRUGS (7)
  1. ESCITALOPRAM [Suspect]
     Indication: DEPRESSION
     Dosage: 10 MG QD PO
     Route: 048
     Dates: start: 20070415, end: 20070509
  2. FLECAINIDE ACETATE [Suspect]
     Indication: ATRIAL FIBRILLATION
     Dosage: 100 MG BID PO
     Route: 048
     Dates: end: 20070509
  3. FLECAINIDE ACETATE [Suspect]
     Indication: ATRIAL FIBRILLATION
     Dosage: 100 MG BID PO
     Route: 048
  4. NEORAL [Suspect]
     Indication: RENAL TRANSPLANT
     Dosage: 50 MG BID PO
     Route: 048
  5. DEPAKENE [Suspect]
     Indication: EPILEPSY
     Dosage: 500 MG QID PO
     Route: 048
  6. PREDNISONE [Suspect]
     Indication: RENAL TRANSPLANT
     Dosage: 10 MG QD PO
     Route: 048
  7. CLAFORAN [Concomitant]

REACTIONS (6)
  - DRUG INTOLERANCE [None]
  - ENCEPHALOPATHY [None]
  - OVERDOSE [None]
  - RENAL FAILURE [None]
  - SEPSIS [None]
  - UROSEPSIS [None]
